FAERS Safety Report 7911077-0 (Version None)
Quarter: 2011Q4

REPORT INFORMATION
  Report Type: 
  Country: None (occurrence: None)
  Receive Date: 20111114
  Receipt Date: 20111102
  Transmission Date: 20120403
  Serious: Yes (Other)
  Sender: FDA-Public Use
  Company Number: JP-BRISTOL-MYERS SQUIBB COMPANY-16222382

PATIENT
  Age: 1 Day
  Sex: Female

DRUGS (1)
  1. ABILIFY [Suspect]
     Dosage: 6MG INTERRUPTED ON 8DEC10.
     Route: 064
     Dates: end: 20110804

REACTIONS (1)
  - CONGENITAL LARYNGEAL STRIDOR [None]
